FAERS Safety Report 23260305 (Version 3)
Quarter: 2024Q1

REPORT INFORMATION
  Report Type: Spontaneous
  Country: TR (occurrence: TR)
  Receive Date: 20231204
  Receipt Date: 20240111
  Transmission Date: 20240410
  Serious: Yes (Hospitalization, Other)
  Sender: FDA-Public Use
  Company Number: TR-BAXTER-2023BAX036876

PATIENT
  Sex: Male

DRUGS (3)
  1. CALCIUM CL\DEXTROSE\MAGNESIUM CL\SODIUM BICAR\SODIUM CL\SODIUM LACT [Suspect]
     Active Substance: CALCIUM CHLORIDE\DEXTROSE MONOHYDRATE\MAGNESIUM CHLORIDE\SODIUM BICARBONATE\SODIUM CHLORIDE\SODIUM L
     Dosage: SAME DOSE EVERY EVENING (DETAILS NOT REPORTED)
     Route: 033
  2. NUTRINEAL [Suspect]
     Active Substance: AMINO ACIDS\CALCIUM CHLORIDE\MAGNESIUM CHLORIDE\SODIUM CHLORIDE\SODIUM LACTATE
     Dosage: SAME DOSE EVERY EVENING (DETAILS NOT REPORTED)
     Route: 033
  3. EXTRANEAL [Suspect]
     Active Substance: CALCIUM CHLORIDE\ICODEXTRIN\MAGNESIUM CHLORIDE\SODIUM CHLORIDE\SODIUM LACTATE
     Dosage: SAME DOSE EVERY EVENING (DETAILS NOT REPORTED)
     Route: 033

REACTIONS (13)
  - Blood creatinine decreased [Recovering/Resolving]
  - Fungaemia [Recovering/Resolving]
  - Urinary tract infection [Recovered/Resolved]
  - Anaemia [Recovering/Resolving]
  - Swelling [Recovered/Resolved]
  - Oedema [Recovered/Resolved]
  - Adverse drug reaction [Recovering/Resolving]
  - Ovarian disorder [Recovering/Resolving]
  - Ovarian oedema [Recovering/Resolving]
  - Generalised oedema [Recovered/Resolved]
  - Urine output decreased [Recovering/Resolving]
  - Infection [Recovering/Resolving]
  - Disease progression [Recovering/Resolving]
